FAERS Safety Report 23626066 (Version 1)
Quarter: 2024Q1

REPORT INFORMATION
  Report Type: Spontaneous
  Country: US (occurrence: US)
  Receive Date: 20240313
  Receipt Date: 20240313
  Transmission Date: 20240409
  Serious: No
  Sender: FDA-Public Use
  Company Number: US-BRISTOL-MYERS SQUIBB COMPANY-2024-039624

PATIENT
  Sex: Male
  Weight: 74.84 kg

DRUGS (1)
  1. REBLOZYL [Suspect]
     Active Substance: LUSPATERCEPT-AAMT
     Indication: Myelodysplastic syndrome
     Dosage: DOSE : 75 MG;     FREQ : EVERY THREE WEEKS
     Dates: start: 20240109

REACTIONS (6)
  - Dizziness [Unknown]
  - Dyspnoea [Unknown]
  - Fall [Unknown]
  - Skin abrasion [Unknown]
  - Head injury [Unknown]
  - Amnesia [Unknown]
